FAERS Safety Report 22283384 (Version 1)
Quarter: 2023Q2

REPORT INFORMATION
  Report Type: Spontaneous
  Country: ES (occurrence: ES)
  Receive Date: 20230504
  Receipt Date: 20230504
  Transmission Date: 20230721
  Serious: Yes (Other)
  Sender: FDA-Public Use
  Company Number: None

PATIENT
  Age: 32 Year
  Sex: Male

DRUGS (4)
  1. CYCLOSPORINE [Suspect]
     Active Substance: CYCLOSPORINE
     Indication: Dermatitis atopic
     Dosage: 150 MG, Q12H
     Route: 048
     Dates: start: 20210827, end: 20220408
  2. CYCLOSPORINE [Suspect]
     Active Substance: CYCLOSPORINE
     Dosage: 150 MG, Q12H
     Route: 048
     Dates: start: 20220817, end: 20221024
  3. DUPILUMAB [Concomitant]
     Active Substance: DUPILUMAB
     Indication: Dermatitis atopic
     Dosage: 300 MG, Q2W (EVERY 14 DAY), (132 DAYS)
     Route: 058
     Dates: start: 20220408, end: 20220817
  4. TRALOKINUMAB [Concomitant]
     Active Substance: TRALOKINUMAB
     Indication: Dermatitis atopic
     Dosage: 300 MG, Q2W (EVERY 14 DAY)
     Route: 058
     Dates: start: 20221026

REACTIONS (1)
  - Pityriasis rubra pilaris [Recovered/Resolved]

NARRATIVE: CASE EVENT DATE: 20220118
